FAERS Safety Report 14297544 (Version 3)
Quarter: 2018Q1

REPORT INFORMATION
  Report Type: Spontaneous
  Country: US (occurrence: US)
  Receive Date: 20171218
  Receipt Date: 20180222
  Transmission Date: 20180509
  Serious: Yes (Other)
  Sender: FDA-Public Use
  Company Number: US-PFIZER INC-2017536973

PATIENT
  Sex: Male

DRUGS (1)
  1. PROSTIN VR PEDIATRIC [Suspect]
     Active Substance: ALPROSTADIL
     Indication: COARCTATION OF THE AORTA
     Dosage: 0.03 MCG/KG/MIN

REACTIONS (1)
  - Drug ineffective [Recovered/Resolved]

NARRATIVE: CASE EVENT DATE: 20171208
